FAERS Safety Report 20195829 (Version 3)
Quarter: 2022Q1

REPORT INFORMATION
  Report Type: Spontaneous
  Country: CA (occurrence: CA)
  Receive Date: 20211216
  Receipt Date: 20220321
  Transmission Date: 20220423
  Serious: Yes (Hospitalization)
  Sender: FDA-Public Use
  Company Number: CA-PFIZER INC-202101740027

PATIENT
  Age: 67 Year
  Sex: Male
  Weight: 185 kg

DRUGS (2)
  1. XELJANZ [Suspect]
     Active Substance: TOFACITINIB CITRATE
     Indication: Rheumatoid arthritis
     Dosage: 11 MG, DAILY
     Route: 048
     Dates: start: 202105, end: 20211124
  2. PROLIA [Concomitant]
     Active Substance: DENOSUMAB
     Dosage: UNK

REACTIONS (9)
  - Pulmonary oedema [Unknown]
  - Diverticulitis [Recovered/Resolved]
  - Intestinal perforation [Unknown]
  - Rash macular [Unknown]
  - Weight decreased [Unknown]
  - Fall [Unknown]
  - Skin laceration [Unknown]
  - Osteoarthritis [Unknown]
  - Rash papular [Unknown]

NARRATIVE: CASE EVENT DATE: 20210901
